FAERS Safety Report 5543916-5 (Version None)
Quarter: 2007Q4

REPORT INFORMATION
  Report Type: 
  Country: None (occurrence: None)
  Receive Date: 20071210
  Receipt Date: 20061213
  Transmission Date: 20080405
  Serious: No
  Sender: FDA-Public Use
  Company Number: US-AMGEN-KDL193850

PATIENT
  Sex: Female

DRUGS (7)
  1. ENBREL [Suspect]
     Indication: ANKYLOSING SPONDYLITIS
     Route: 058
     Dates: start: 20060820
  2. INDOCIN [Concomitant]
  3. NEXIUM [Concomitant]
  4. ULTRAM [Concomitant]
  5. XANAX [Concomitant]
  6. SKELAXIN [Concomitant]
  7. LEXAPRO [Concomitant]

REACTIONS (1)
  - INFLAMMATORY BOWEL DISEASE [None]
